FAERS Safety Report 5920043-6 (Version None)
Quarter: 2008Q4

REPORT INFORMATION
  Report Type: 
  Country: None (occurrence: None)
  Receive Date: 20081014
  Receipt Date: 20081002
  Transmission Date: 20090506
  Serious: No
  Sender: FDA-Public Use
  Company Number: US024802

PATIENT
  Sex: Female

DRUGS (1)
  1. FENTORA [Suspect]
     Indication: MIGRAINE
     Dosage: BUCCAL
     Route: 002

REACTIONS (1)
  - DRUG PRESCRIBING ERROR [None]
